FAERS Safety Report 9686103 (Version 1)
Quarter: 2013Q4

REPORT INFORMATION
  Report Type: Spontaneous
  Country: PL (occurrence: PL)
  Receive Date: 20131113
  Receipt Date: 20131113
  Transmission Date: 20140711
  Serious: Yes (Death, Hospitalization)
  Sender: FDA-Public Use
  Company Number: PL-ACTAVIS-2013-20112

PATIENT
  Age: 37 Year
  Sex: Female

DRUGS (1)
  1. TRAMADOL (UNKNOWN) [Suspect]
     Indication: DEPENDENCE
     Dosage: UNK
     Route: 065
     Dates: start: 2008

REACTIONS (3)
  - Sudden cardiac death [Fatal]
  - Drug dependence [Fatal]
  - Toxicity to various agents [Fatal]
